FAERS Safety Report 6590322-0 (Version None)
Quarter: 2010Q1

REPORT INFORMATION
  Report Type: 
  Country: None (occurrence: None)
  Receive Date: 20100219
  Receipt Date: 20100211
  Transmission Date: 20100710
  Serious: Yes (Other)
  Sender: FDA-Public Use
  Company Number: US-SANOFI-AVENTIS-2010SA009055

PATIENT
  Sex: Female

DRUGS (9)
  1. AMBIEN [Suspect]
     Route: 048
  2. METFORMIN HCL [Concomitant]
  3. LYRICA [Concomitant]
  4. FUROSEMIDE [Concomitant]
  5. ALL OTHER THERAPEUTIC PRODUCTS [Concomitant]
     Dates: end: 20090701
  6. LUNESTA [Concomitant]
     Route: 048
     Dates: end: 20091201
  7. LUNESTA [Concomitant]
     Route: 048
     Dates: end: 20091201
  8. LUNESTA [Concomitant]
     Route: 048
  9. LUNESTA [Concomitant]
     Route: 048

REACTIONS (3)
  - NERVE COMPRESSION [None]
  - PAIN IN EXTREMITY [None]
  - ROAD TRAFFIC ACCIDENT [None]
